FAERS Safety Report 7086522-6 (Version None)
Quarter: 2010Q4

REPORT INFORMATION
  Report Type: 
  Country: None (occurrence: None)
  Receive Date: 20101028
  Receipt Date: 20101021
  Transmission Date: 20110411
  Serious: Yes (Life-Threatening, Disabling)
  Sender: FDA-Public Use
  Company Number: 2010JP005701

PATIENT
  Age: 79 Year
  Sex: Female
  Weight: 53 kg

DRUGS (5)
  1. FUNGUARD (MICAFUNGIN) INJECTION [Suspect]
     Indication: LYMPHADENITIS
     Dosage: 100 MG, UID/QD, IV DRIP
     Route: 042
     Dates: start: 20100921, end: 20100921
  2. LANDEL (EFONIDIPINE HYDROCHLORIDE) [Concomitant]
  3. TORSEMIDE [Concomitant]
  4. MAXIPIME [Concomitant]
  5. INCREMIN (FERRIC PYROPHOSPHATE) [Concomitant]

REACTIONS (6)
  - ACUTE RESPIRATORY FAILURE [None]
  - ANAPHYLACTIC SHOCK [None]
  - COOMBS TEST POSITIVE [None]
  - INTRAVASCULAR HAEMOLYSIS [None]
  - LACTIC ACIDOSIS [None]
  - RENAL FAILURE ACUTE [None]
